APPROVED DRUG PRODUCT: TEGRETOL
Active Ingredient: CARBAMAZEPINE
Strength: 100MG/5ML
Dosage Form/Route: SUSPENSION;ORAL
Application: N018927 | Product #001 | TE Code: AB
Applicant: NOVARTIS PHARMACEUTICALS CORP
Approved: Dec 18, 1987 | RLD: Yes | RS: Yes | Type: RX